FAERS Safety Report 20632665 (Version 1)
Quarter: 2022Q1

REPORT INFORMATION
  Report Type: Spontaneous
  Country: US (occurrence: None)
  Receive Date: 20220324
  Receipt Date: 20220324
  Transmission Date: 20220424
  Serious: Yes (Hospitalization)
  Sender: FDA-Public Use
  Company Number: None

PATIENT
  Sex: Female

DRUGS (1)
  1. CYCLOSPORINE [Suspect]
     Active Substance: CYCLOSPORINE
     Indication: Immunodeficiency
     Dosage: TAKE 2 CAPSULES (50 MG TOTAL) BY MOUTH EVERY 12 (TWELVE) HOURS.
     Route: 048
     Dates: start: 20220201

REACTIONS (1)
  - Hypertension [None]
